FAERS Safety Report 13031990 (Version 2)
Quarter: 2018Q4

REPORT INFORMATION
  Report Type: Spontaneous
  Country: US (occurrence: US)
  Receive Date: 20161215
  Receipt Date: 20181231
  Transmission Date: 20190204
  Serious: No
  Sender: FDA-Public Use
  Company Number: US-PFIZER INC-2016572721

PATIENT
  Sex: Female

DRUGS (3)
  1. VIBRACINA [Suspect]
     Active Substance: DOXYCYCLINE
     Dosage: UNK
  2. VIBRAMYCIN [Suspect]
     Active Substance: DOXYCYCLINE
     Dosage: UNK
  3. TETRACYCLINE HCL [Suspect]
     Active Substance: TETRACYCLINE HYDROCHLORIDE
     Dosage: UNK

REACTIONS (1)
  - Drug hypersensitivity [Unknown]
